FAERS Safety Report 12158265 (Version 1)
Quarter: 2016Q1

REPORT INFORMATION
  Report Type: Spontaneous
  Country: US (occurrence: US)
  Receive Date: 20160308
  Receipt Date: 20160308
  Transmission Date: 20160526
  Serious: Yes (Hospitalization)
  Sender: FDA-Public Use
  Company Number: US-JNJFOC-20150317030

PATIENT
  Sex: Female
  Weight: 103 kg

DRUGS (12)
  1. IMBRUVICA [Suspect]
     Active Substance: IBRUTINIB
     Indication: CHRONIC LYMPHOCYTIC LEUKAEMIA
     Route: 048
     Dates: start: 201407
  2. GLUCOSAMINE / CHONDROITIN [Concomitant]
  3. GLYBURIDE. [Concomitant]
     Active Substance: GLYBURIDE
  4. IMBRUVICA [Suspect]
     Active Substance: IBRUTINIB
     Indication: CHRONIC LYMPHOCYTIC LEUKAEMIA
     Route: 048
  5. GABAPENTIN. [Concomitant]
     Active Substance: GABAPENTIN
  6. AMITRIPTYLINE [Concomitant]
     Active Substance: AMITRIPTYLINE
  7. HUMULIN N [Concomitant]
     Active Substance: INSULIN HUMAN
  8. LORAZEPAM. [Concomitant]
     Active Substance: LORAZEPAM
  9. PROCARDIA [Concomitant]
     Active Substance: NIFEDIPINE
  10. MAXZIDE [Concomitant]
     Active Substance: HYDROCHLOROTHIAZIDE\TRIAMTERENE
  11. PRILOSEC [Concomitant]
     Active Substance: OMEPRAZOLE MAGNESIUM
  12. HUMULIN R [Concomitant]
     Active Substance: INSULIN HUMAN

REACTIONS (1)
  - Gastroenteritis viral [Unknown]
